FAERS Safety Report 4473165-3 (Version None)
Quarter: 2004Q4

REPORT INFORMATION
  Report Type: 
  Country: None (occurrence: None)
  Receive Date: 20041013
  Receipt Date: 20041001
  Transmission Date: 20050328
  Serious: Yes (Other)
  Sender: FDA-Public Use
  Company Number: PHFR2004GB03717

PATIENT
  Sex: Female

DRUGS (1)
  1. CARBAMAZEPINE [Suspect]

REACTIONS (6)
  - ATAXIA [None]
  - CATARACT [None]
  - EOSINOPHILIA [None]
  - MUSCLE CRAMP [None]
  - TUNNEL VISION [None]
  - UPPER RESPIRATORY TRACT INFLAMMATION [None]
